FAERS Safety Report 7550638-8 (Version None)
Quarter: 2011Q2

REPORT INFORMATION
  Report Type: 
  Country: None (occurrence: None)
  Receive Date: 20110616
  Receipt Date: 20110601
  Transmission Date: 20111010
  Serious: Yes (Hospitalization)
  Sender: FDA-Public Use
  Company Number: FR-CELGENEUS-056-C5013-11032144

PATIENT
  Sex: Male
  Weight: 105 kg

DRUGS (16)
  1. LENALIDOMIDE [Suspect]
     Dosage: 25 MILLIGRAM
     Route: 048
     Dates: start: 20110224, end: 20110309
  2. ATENOLOL [Concomitant]
     Dosage: 1 DOSAGE FORMS
     Route: 048
  3. METFORMIN HCL [Concomitant]
     Route: 048
     Dates: start: 20100504
  4. GAVISCON [Concomitant]
     Route: 065
     Dates: start: 20110113
  5. DECAPEPTYL [Concomitant]
     Indication: PROSTATE CANCER
     Dosage: .125 MILLIGRAM
     Route: 058
     Dates: start: 20040101
  6. DOCETAXEL [Suspect]
     Indication: PROSTATE CANCER
     Dosage: 150 MILLIGRAM
     Route: 065
     Dates: start: 20101202
  7. PREDNISONE [Suspect]
     Indication: PROSTATE CANCER
     Dosage: 10 MILLIGRAM
     Route: 065
     Dates: start: 20101202
  8. TRAMADOL HCL [Concomitant]
     Indication: PAIN
     Dosage: 2000 UNKNOWN
     Route: 065
     Dates: start: 20110224
  9. ZOMETA [Concomitant]
     Indication: PROSTATE CANCER
     Dosage: .1333 MILLIGRAM
     Route: 051
     Dates: start: 20040101
  10. GLICLAZIDE [Concomitant]
     Route: 048
     Dates: start: 20100504
  11. ACETAMINOPHEN [Concomitant]
     Dosage: 20 UNKNOWN
     Route: 065
  12. LENALIDOMIDE [Suspect]
     Indication: PROSTATE CANCER
     Dosage: 25 MILLIGRAM
     Route: 048
     Dates: start: 20101202
  13. DOCETAXEL [Suspect]
     Dosage: 150 MILLIGRAM
     Route: 065
     Dates: start: 20110224, end: 20110224
  14. PREDNISONE [Suspect]
     Dosage: 10 MILLIGRAM
     Route: 065
     Dates: start: 20110224, end: 20110316
  15. PRAVASTATIN SODIUM [Concomitant]
     Dosage: 1 DOSAGE FORMS
     Route: 048
  16. OMEPRAZOLE [Concomitant]
     Dosage: 1-2 CAPSULES
     Route: 048
     Dates: start: 20110113

REACTIONS (1)
  - DYSKINESIA [None]
